FAERS Safety Report 19742065 (Version 1)
Quarter: 2021Q3

REPORT INFORMATION
  Report Type: Spontaneous
  Country: US (occurrence: US)
  Receive Date: 20210825
  Receipt Date: 20210825
  Transmission Date: 20211014
  Serious: Yes (Hospitalization, Other)
  Sender: FDA-Public Use
  Company Number: US-LUPIN PHARMACEUTICALS INC.-2021-15614

PATIENT
  Age: 82 Year
  Sex: Male

DRUGS (2)
  1. LEVOTHYROXINE. [Suspect]
     Active Substance: LEVOTHYROXINE
     Indication: PRIMARY HYPOTHYROIDISM
     Dosage: 275 MICROGRAM, QD, RECEIVED MORE THAN 1.6 MICROGRAM/KG (HAD TWO REFILLS)
     Route: 065
  2. LEVOTHYROXINE. [Suspect]
     Active Substance: LEVOTHYROXINE
     Dosage: 100 MICROGRAM, QD, RESTARTED
     Route: 065

REACTIONS (3)
  - Ventricular tachycardia [Recovering/Resolving]
  - Hyperthyroidism [Recovering/Resolving]
  - Condition aggravated [Recovering/Resolving]
